FAERS Safety Report 21505499 (Version 2)
Quarter: 2023Q4

REPORT INFORMATION
  Report Type: Other
  Country: US (occurrence: None)
  Receive Date: 20221026
  Receipt Date: 20231110
  Transmission Date: 20240110
  Serious: Yes (Hospitalization)
  Sender: FDA-Public Use
  Company Number: US-ROCHE-3204814

PATIENT
  Age: 45 Year
  Sex: Male

DRUGS (10)
  1. OCREVUS [Suspect]
     Active Substance: OCRELIZUMAB
     Indication: Relapsing-remitting multiple sclerosis
     Dosage: ONGOING: YES
     Route: 042
     Dates: start: 202110
  2. OCREVUS [Suspect]
     Active Substance: OCRELIZUMAB
     Route: 042
     Dates: start: 20210917
  3. LIORESAL [Concomitant]
     Active Substance: BACLOFEN
     Indication: Muscle tightness
     Route: 048
     Dates: start: 2012
  4. LIORESAL [Concomitant]
     Active Substance: BACLOFEN
     Indication: Muscle spasms
  5. LASIX [Concomitant]
     Active Substance: FUROSEMIDE
     Route: 048
  6. VITAMIN D3 [Concomitant]
     Active Substance: CHOLECALCIFEROL
     Dosage: 5000 UNITED BY MOUTH AS DIRECTED
  7. COPAXONE [Concomitant]
     Active Substance: GLATIRAMER ACETATE
     Dosage: INJECT 1 ML UNDER THE SKIN THREE TIMES A WEEK
  8. MINOCIN [Concomitant]
     Active Substance: MINOCYCLINE HYDROCHLORIDE
  9. ZOLOFT [Concomitant]
     Active Substance: SERTRALINE HYDROCHLORIDE
  10. MYRBETRIQ [Concomitant]
     Active Substance: MIRABEGRON

REACTIONS (5)
  - Urinary tract infection [Recovered/Resolved]
  - Immobile [Recovering/Resolving]
  - Asthenia [Recovering/Resolving]
  - Pyrexia [Recovered/Resolved]
  - Muscular weakness [Recovering/Resolving]

NARRATIVE: CASE EVENT DATE: 20221001
